FAERS Safety Report 5918317-8 (Version None)
Quarter: 2008Q4

REPORT INFORMATION
  Report Type: 
  Country: None (occurrence: None)
  Receive Date: 20081010
  Receipt Date: 20080929
  Transmission Date: 20090506
  Serious: Yes (Hospitalization)
  Sender: FDA-Public Use
  Company Number: 237586J08USA

PATIENT
  Age: 58 Year
  Sex: Female
  Weight: 55 kg

DRUGS (10)
  1. REBIF [Suspect]
     Indication: MULTIPLE SCLEROSIS
     Dosage: 44 MCG, 3 IN 1 WEEKS, SUBCUTANEOUS
     Route: 058
     Dates: start: 20070917
  2. DEPAKOTE [Concomitant]
  3. EFFEXOR [Concomitant]
  4. PAXIL [Concomitant]
  5. NEURONTINE(GABAPENTIN) [Concomitant]
  6. VALIUM [Concomitant]
  7. NEXIUM [Concomitant]
  8. ZANTAC 150 [Concomitant]
  9. TRAZODONE HCL [Concomitant]
  10. MORPHINE PUMP(MORPHINE) [Concomitant]

REACTIONS (4)
  - MENORRHAGIA [None]
  - PRECANCEROUS CELLS PRESENT [None]
  - URINARY TRACT INFECTION [None]
  - UTERINE DISORDER [None]
